FAERS Safety Report 24883630 (Version 1)
Quarter: 2025Q1

REPORT INFORMATION
  Report Type: Spontaneous
  Country: FR (occurrence: FR)
  Receive Date: 20250124
  Receipt Date: 20250124
  Transmission Date: 20250409
  Serious: Yes (Hospitalization)
  Sender: TEVA
  Company Number: None

PATIENT
  Age: 62 Year
  Sex: Female
  Weight: 66.7 kg

DRUGS (9)
  1. CEFTRIAXONE [Suspect]
     Active Substance: CEFTRIAXONE
     Indication: Neuralgia
     Dosage: CEFTRIAXONE BASE
     Route: 042
     Dates: start: 20241213, end: 20241223
  2. AMITRIPTYLINE HYDROCHLORIDE [Suspect]
     Active Substance: AMITRIPTYLINE HYDROCHLORIDE
     Indication: Neuralgia
     Route: 048
     Dates: start: 20241214, end: 20241220
  3. AMITRIPTYLINE HYDROCHLORIDE [Suspect]
     Active Substance: AMITRIPTYLINE HYDROCHLORIDE
     Indication: Neuralgia
     Route: 048
     Dates: start: 20241223
  4. AMITRIPTYLINE HYDROCHLORIDE [Suspect]
     Active Substance: AMITRIPTYLINE HYDROCHLORIDE
     Indication: Neuralgia
     Route: 048
     Dates: start: 20241220, end: 20241221
  5. AMITRIPTYLINE HYDROCHLORIDE [Suspect]
     Active Substance: AMITRIPTYLINE HYDROCHLORIDE
     Indication: Neuralgia
     Route: 048
     Dates: start: 20241221, end: 20241223
  6. GABAPENTIN [Suspect]
     Active Substance: GABAPENTIN
     Indication: Neuralgia
     Route: 048
     Dates: start: 20241220
  7. GABAPENTIN [Suspect]
     Active Substance: GABAPENTIN
     Indication: Neuralgia
     Route: 048
     Dates: start: 20241211, end: 20241212
  8. GABAPENTIN [Suspect]
     Active Substance: GABAPENTIN
     Indication: Neuralgia
     Route: 048
     Dates: start: 20241213, end: 20241220
  9. GABAPENTIN [Suspect]
     Active Substance: GABAPENTIN
     Indication: Neuralgia
     Route: 048
     Dates: start: 20241220, end: 20241224

REACTIONS (1)
  - Hepatocellular injury [Not Recovered/Not Resolved]

NARRATIVE: CASE EVENT DATE: 20241223
